FAERS Safety Report 5131816-4 (Version None)
Quarter: 2006Q4

REPORT INFORMATION
  Report Type: 
  Country: None (occurrence: None)
  Receive Date: 20061016
  Receipt Date: 20061003
  Transmission Date: 20070319
  Serious: Yes (Hospitalization, Other)
  Sender: FDA-Public Use
  Company Number: 2002119362FR

PATIENT
  Age: 55 Year
  Sex: Male
  Weight: 70 kg

DRUGS (6)
  1. GEMFIBROZIL [Suspect]
     Dosage: 1 IN 1 D, ORAL
     Route: 048
     Dates: start: 20011218
  2. SULFASALAZINE [Suspect]
     Dosage: 4 IN 1 D, ORAL
     Dates: start: 19971229
  3. INDOMETHACIN [Suspect]
     Dosage: 25 MG (1 IN 1 D), ORAL
     Route: 048
     Dates: start: 19971229
  4. CRIXIVAN [Suspect]
     Dosage: 2400 MG (800 MG, 3 IN 1 D), ORAL
     Route: 048
     Dates: start: 19971031
  5. EPIVIR [Suspect]
     Dosage: 300 MG (150 MG, 2 IN 1 D), ORAL
     Route: 048
     Dates: start: 19971031
  6. ZERIT [Suspect]
     Dosage: 80 MG (40 MG, 2 IN 1 D), ORAL
     Dates: start: 19971031

REACTIONS (4)
  - ANGINA PECTORIS [None]
  - APNOEA [None]
  - CORONARY ARTERY STENOSIS [None]
  - CORONARY ARTERY THROMBOSIS [None]
